FAERS Safety Report 10265097 (Version 4)
Quarter: 2014Q3

REPORT INFORMATION
  Report Type: Report from Study
  Country: US (occurrence: US)
  Receive Date: 20140627
  Receipt Date: 20140923
  Transmission Date: 20150326
  Serious: Yes (Hospitalization, Other)
  Sender: FDA-Public Use
  Company Number: PHEH2014US011850

PATIENT
  Sex: Female
  Weight: 33.2 kg

DRUGS (5)
  1. ILARIS [Suspect]
     Active Substance: CANAKINUMAB
     Dosage: 135 MG, QMO
     Route: 058
     Dates: start: 20140619
  2. ILARIS [Suspect]
     Active Substance: CANAKINUMAB
     Indication: JUVENILE IDIOPATHIC ARTHRITIS
     Dosage: 150 MG/ML, EVERY 4 WEEKS
     Route: 058
     Dates: start: 20140521
  3. ZANTAC [Concomitant]
     Active Substance: RANITIDINE HYDROCHLORIDE
     Indication: GASTRITIS
     Dosage: 150 MG, DAILY
     Route: 048
     Dates: start: 201403
  4. ALBUTEROL. [Concomitant]
     Active Substance: ALBUTEROL
     Indication: ASTHMA
     Dosage: 2 DF, PRN
     Route: 055
  5. MELOXICAM. [Concomitant]
     Active Substance: MELOXICAM
     Indication: JUVENILE IDIOPATHIC ARTHRITIS
     Dosage: 3.75 MG, DAILY
     Route: 048
     Dates: start: 20140501

REACTIONS (11)
  - Blood chloride decreased [Unknown]
  - Blood potassium increased [Unknown]
  - Blood sodium decreased [Unknown]
  - Protein total increased [Unknown]
  - Blood creatinine decreased [Unknown]
  - Mean cell haemoglobin concentration increased [Unknown]
  - Drug ineffective [Unknown]
  - Tremor [Unknown]
  - Alanine aminotransferase increased [Unknown]
  - Cold sweat [Unknown]
  - Pericardial effusion [Unknown]
